FAERS Safety Report 5090829-1 (Version None)
Quarter: 2006Q3

REPORT INFORMATION
  Report Type: 
  Country: None (occurrence: None)
  Receive Date: 20060823
  Receipt Date: 20060811
  Transmission Date: 20061208
  Serious: Yes (Death)
  Sender: FDA-Public Use
  Company Number: ENTC2006-0238

PATIENT
  Age: 84 Year
  Sex: Male

DRUGS (1)
  1. STALEVO 100 [Suspect]
     Dosage: 100 MG

REACTIONS (1)
  - DEATH [None]
